FAERS Safety Report 8471199-5 (Version None)
Quarter: 2012Q2

REPORT INFORMATION
  Report Type: 
  Country: None (occurrence: None)
  Receive Date: 20120627
  Receipt Date: 20120620
  Transmission Date: 20120825
  Serious: Yes (Other)
  Sender: FDA-Public Use
  Company Number: NL-PFIZER INC-2012118691

PATIENT
  Age: 73 Year
  Sex: Female

DRUGS (7)
  1. CALCIUM CARBONATE [Concomitant]
     Dosage: UNK
  2. HYDROCHLOROTHIAZIDE [Concomitant]
     Dosage: 25 MG, 1X/DAY
  3. ACETYLSALICYLIC ACID [Concomitant]
     Dosage: 80 MG, 1X/DAY
  4. ENALAPRIL [Concomitant]
     Dosage: UNK
  5. ATORVASTATIN CALCIUM [Suspect]
     Dosage: 40 MG, 1X/DAY
     Dates: start: 20120414, end: 20120501
  6. METOPROLOL SUCCINATE [Concomitant]
     Dosage: 25 MG, 1X/DAY
  7. PANTOPRAZOLE [Concomitant]
     Dosage: 40 MG, 1X/DAY

REACTIONS (8)
  - ABDOMINAL DISTENSION [None]
  - THERAPEUTIC RESPONSE UNEXPECTED WITH DRUG SUBSTITUTION [None]
  - MUSCLE SPASMS [None]
  - PAIN IN EXTREMITY [None]
  - IRRITABILITY [None]
  - AMNESIA [None]
  - NAUSEA [None]
  - MYALGIA [None]
